FAERS Safety Report 5328256-1 (Version None)
Quarter: 2007Q2

REPORT INFORMATION
  Report Type: 
  Country: None (occurrence: None)
  Receive Date: 20070516
  Receipt Date: 20070516
  Transmission Date: 20071010
  Serious: Yes (Hospitalization)
  Sender: FDA-Public Use
  Company Number: None

PATIENT
  Sex: Male
  Weight: 63 kg

DRUGS (6)
  1. LOVASTATIN [Suspect]
     Indication: HYPERLIPIDAEMIA
     Dosage: 60MG QPM (PO)
     Route: 048
     Dates: start: 19970101
  2. FUROSEMIDE [Concomitant]
  3. ISOSORBIDE [Concomitant]
  4. DINITRATE [Concomitant]
  5. LISINOPRIL [Concomitant]
  6. HYDROXYZINE HYDROCHLORIDE [Concomitant]

REACTIONS (2)
  - RENAL FAILURE ACUTE [None]
  - RHABDOMYOLYSIS [None]
